FAERS Safety Report 9796469 (Version 1)
Quarter: 2014Q1

REPORT INFORMATION
  Report Type: Spontaneous
  Country: US (occurrence: US)
  Receive Date: 20140103
  Receipt Date: 20140103
  Transmission Date: 20141002
  Serious: Yes (Death, Other)
  Sender: FDA-Public Use
  Company Number: US-UCBSA-107666

PATIENT
  Age: 57 Year
  Sex: Female

DRUGS (7)
  1. ALPRAZOLAM [Suspect]
     Dosage: ROUTE: INGESTION + UNKNOWN
  2. HEROIN [Suspect]
     Dosage: ROUTE: INGESTION + UNKNOWN
  3. COCAINE [Suspect]
     Dosage: ROUTE: INGESTION + UNKNOWN
  4. QUETIAPINE [Suspect]
     Dosage: ROUTE: INGESTION + UNKNOWN
  5. DIPHENHYDRAMINE [Suspect]
     Dosage: ROUTE: INGESTION + UNKNOWN
  6. CYCLOBENZAPRINE [Suspect]
     Dosage: ROUTE: INGESTION + UNKNOWN
  7. SERTRALINE [Suspect]
     Dosage: ROUTE: INGESTION + UNKNOWN

REACTIONS (1)
  - Drug abuse [Fatal]
